FAERS Safety Report 9639741 (Version 1)
Quarter: 2013Q4

REPORT INFORMATION
  Report Type: Spontaneous
  Country: US (occurrence: None)
  Receive Date: 20131021
  Receipt Date: 20131021
  Transmission Date: 20140711
  Serious: Yes (Disabling, Other)
  Sender: FDA-Public Use
  Company Number: None

PATIENT
  Age: 21 Year
  Sex: Female
  Weight: 77.11 kg

DRUGS (2)
  1. MINASTRIN 24 FE [Suspect]
     Indication: ANAEMIA
     Route: 048
     Dates: start: 20130904, end: 20131011
  2. MINASTRIN 24 FE [Suspect]
     Indication: MENSTRUAL DISORDER
     Route: 048
     Dates: start: 20130904, end: 20131011

REACTIONS (11)
  - Migraine [None]
  - Acne [None]
  - Nausea [None]
  - Mood altered [None]
  - Menorrhagia [None]
  - Menstruation delayed [None]
  - Condition aggravated [None]
  - Abnormal weight gain [None]
  - Abdominal distension [None]
  - Vomiting [None]
  - Product substitution issue [None]
